FAERS Safety Report 6330034-1 (Version None)
Quarter: 2009Q3

REPORT INFORMATION
  Report Type: 
  Country: None (occurrence: None)
  Receive Date: 20090825
  Receipt Date: 20090817
  Transmission Date: 20100115
  Serious: Yes (Other)
  Sender: FDA-Public Use
  Company Number: GXKR2009US09292

PATIENT
  Age: 79 Year
  Sex: Male

DRUGS (18)
  1. LINEZOLID [Suspect]
     Indication: PNEUMONIA STAPHYLOCOCCAL
     Dosage: 600 MG, Q12H, INTRAVENOUS
     Route: 042
  2. GEMFIBROZIL [Suspect]
     Indication: HYPERLIPIDAEMIA
     Dosage: 600 MG, BID, ORAL
     Route: 048
  3. LOVASTATIN [Suspect]
     Indication: HYPERLIPIDAEMIA
     Dosage: 40 MG/DAY, ORAL
     Route: 048
  4. DOCUSATE SODIUM (DOCUSATE SODIUM) [Concomitant]
  5. FERROUS SULFATE TAB [Concomitant]
  6. FLUTICASONE (FLUTICASONE) INHALER [Concomitant]
  7. ALBUTEROL W/IPRATROPIUM (IPRATROPIUM, SALBUTAMOL) INHALER [Concomitant]
  8. GLYBURIDE [Concomitant]
  9. NIFEDIPINE [Concomitant]
  10. GLYCERYL TRINITRATE (GLYCERYL TRINITRATE) PATCH [Concomitant]
  11. PANTOPRAZOLE SODIUM [Concomitant]
  12. TAMSULOSIN HCL [Concomitant]
  13. WARFARIN SODIUM [Concomitant]
  14. ACETAMINOPHEN [Concomitant]
  15. HYDROXYZINE [Concomitant]
  16. GLYCERYL TRINITRATE (GLYCERYL TRINITRATE) [Concomitant]
  17. VANCOMYCIN [Concomitant]
  18. LEVOFLOXACIN [Concomitant]

REACTIONS (4)
  - BLOOD CREATINE PHOSPHOKINASE INCREASED [None]
  - DRUG INEFFECTIVE [None]
  - DRUG INTERACTION [None]
  - PNEUMONIA STAPHYLOCOCCAL [None]
